FAERS Safety Report 4848958-0 (Version None)
Quarter: 2005Q4

REPORT INFORMATION
  Report Type: 
  Country: None (occurrence: None)
  Receive Date: 20051122
  Receipt Date: 20041019
  Transmission Date: 20060501
  Serious: Yes (Life-Threatening, Other)
  Sender: FDA-Public Use
  Company Number: 2004-10-0004

PATIENT
  Age: 45 Year
  Sex: Female

DRUGS (1)
  1. PACLITAXEL [Suspect]
     Dosage: 145MG WEEKLY, INTRAVENOUS
     Route: 042
     Dates: start: 20040903, end: 20040903

REACTIONS (1)
  - HYPERSENSITIVITY [None]
